FAERS Safety Report 12183219 (Version 2)
Quarter: 2016Q1

REPORT INFORMATION
  Report Type: Spontaneous
  Country: SA (occurrence: SA)
  Receive Date: 20160316
  Receipt Date: 20160322
  Transmission Date: 20160526
  Serious: Yes (Life-Threatening)
  Sender: FDA-Public Use
  Company Number: PHHY2016SA034423

PATIENT
  Age: 55 Year
  Sex: Female

DRUGS (2)
  1. SANDOSTATIN [Concomitant]
     Active Substance: OCTREOTIDE ACETATE
     Indication: PRODUCT USED FOR UNKNOWN INDICATION
     Dosage: UNK
     Route: 065
  2. AFINITOR [Suspect]
     Active Substance: EVEROLIMUS
     Indication: BREAST CANCER METASTATIC
     Dosage: 5 MG, QD
     Route: 048
     Dates: start: 201504, end: 201511

REACTIONS (8)
  - Pneumonitis [Recovered/Resolved]
  - Fatigue [Unknown]
  - Malaise [Unknown]
  - Cough [Unknown]
  - Wheezing [Unknown]
  - Pulmonary hypertension [Recovered/Resolved]
  - Crepitations [Unknown]
  - Dyspnoea [Unknown]

NARRATIVE: CASE EVENT DATE: 201511
